FAERS Safety Report 20530952 (Version 2)
Quarter: 2022Q2

REPORT INFORMATION
  Report Type: Spontaneous
  Country: SI (occurrence: SI)
  Receive Date: 20220301
  Receipt Date: 20220519
  Transmission Date: 20220721
  Serious: Yes (Hospitalization, Other)
  Sender: FDA-Public Use
  Company Number: SI-TAKEDA-2022TUS012968

PATIENT
  Sex: Male

DRUGS (2)
  1. ENTYVIO [Suspect]
     Active Substance: VEDOLIZUMAB
     Indication: Crohn^s disease
     Dosage: UNK
     Route: 065
     Dates: start: 20211125
  2. ENTYVIO [Suspect]
     Active Substance: VEDOLIZUMAB
     Dosage: UNK
     Route: 065
     Dates: start: 20211209

REACTIONS (13)
  - Varicella [Unknown]
  - Pleural effusion [Unknown]
  - Thrombophlebitis [Unknown]
  - Venous thrombosis [Unknown]
  - Pneumonia [Unknown]
  - Haemophilus sepsis [Unknown]
  - Pneumonia haemophilus [Unknown]
  - Capillary leak syndrome [Unknown]
  - Acute respiratory distress syndrome [Unknown]
  - Acute respiratory failure [Unknown]
  - Thrombocytopenia [Unknown]
  - Disseminated intravascular coagulation [Unknown]
  - Back pain [Unknown]

NARRATIVE: CASE EVENT DATE: 20211227
